FAERS Safety Report 13376765 (Version 1)
Quarter: 2017Q1

REPORT INFORMATION
  Report Type: Spontaneous
  Country: US (occurrence: US)
  Receive Date: 20170327
  Receipt Date: 20170327
  Transmission Date: 20170429
  Serious: Yes (Other)
  Sender: FDA-Public Use
  Company Number: None

PATIENT
  Age: 79 Year
  Sex: Female
  Weight: 63 kg

DRUGS (5)
  1. MULTIVITAMIN [Concomitant]
     Active Substance: VITAMINS
  2. METOPROLO SUCCINATE ER [Concomitant]
  3. LOSARTAN POTASSIUM 25MG TABS #30 [Suspect]
     Active Substance: LOSARTAN POTASSIUM
     Indication: HYPERTENSION
     Dosage: ?          QUANTITY:1 TABLET(S);?
     Route: 048
     Dates: start: 20170307, end: 20170312
  4. COQ10 [Concomitant]
     Active Substance: UBIDECARENONE
  5. ASPRIN [Concomitant]
     Active Substance: ASPIRIN

REACTIONS (4)
  - Scab [None]
  - Rash vesicular [None]
  - Pain [None]
  - Rash macular [None]

NARRATIVE: CASE EVENT DATE: 20170312
